FAERS Safety Report 16838176 (Version 2)
Quarter: 2019Q4

REPORT INFORMATION
  Report Type: Spontaneous
  Country: US (occurrence: US)
  Receive Date: 20190923
  Receipt Date: 20191018
  Transmission Date: 20200122
  Serious: No
  Sender: FDA-Public Use
  Company Number: US-ASTRAZENECA-2019SF29789

PATIENT
  Age: 20141 Day
  Sex: Female
  Weight: 122.5 kg

DRUGS (1)
  1. BYDUREON BCISE [Suspect]
     Active Substance: EXENATIDE
     Indication: DIABETES MELLITUS
     Route: 058
     Dates: start: 20190817

REACTIONS (3)
  - Device leakage [Unknown]
  - Injection site pain [Unknown]
  - Product dose omission [Unknown]

NARRATIVE: CASE EVENT DATE: 20190824
